FAERS Safety Report 7470370-9 (Version None)
Quarter: 2011Q2

REPORT INFORMATION
  Report Type: 
  Country: None (occurrence: None)
  Receive Date: 20110510
  Receipt Date: 20110411
  Transmission Date: 20111010
  Serious: No
  Sender: FDA-Public Use
  Company Number: US-BAYER-2011-032392

PATIENT
  Age: 45 Year
  Sex: Male
  Weight: 105 kg

DRUGS (5)
  1. PROTONIX [Concomitant]
  2. ALEVE (CAPLET) [Suspect]
     Indication: CHEST PAIN
     Dosage: UNK, PRN
     Route: 048
     Dates: start: 20100420
  3. MULTIVITAMINS, OTHER COMBINATIONS [Concomitant]
  4. SEROQUEL [Concomitant]
  5. FLEXERIL [Concomitant]

REACTIONS (1)
  - NO ADVERSE EVENT [None]
